FAERS Safety Report 4414615-8 (Version None)
Quarter: 2004Q3

REPORT INFORMATION
  Report Type: 
  Country: None (occurrence: None)
  Receive Date: 20040729
  Receipt Date: 20040722
  Transmission Date: 20050211
  Serious: Yes (Hospitalization, Other)
  Sender: FDA-Public Use
  Company Number: 200410734BVD

PATIENT
  Age: 60 Year
  Sex: Female
  Weight: 59 kg

DRUGS (2)
  1. ASPIRIN MIGRAENE (ACETYLSALICYLIC ACID) [Suspect]
     Indication: MIGRAINE
     Dosage: 500 MG, TOTAL DAILY, ORAL
     Route: 048
     Dates: start: 20030702, end: 20030703
  2. OMEPRAZOLE [Suspect]
     Indication: ABDOMINAL PAIN UPPER
     Dosage: 20  MG, TOTAL DAILY, ORAL
     Route: 048
     Dates: start: 20030703, end: 20030709

REACTIONS (4)
  - CHOLECYSTITIS [None]
  - HEPATITIS [None]
  - HEPATOCELLULAR DAMAGE [None]
  - WEIGHT DECREASED [None]
